FAERS Safety Report 5060782-5 (Version None)
Quarter: 2006Q3

REPORT INFORMATION
  Report Type: 
  Country: None (occurrence: None)
  Receive Date: 20060719
  Receipt Date: 20060719
  Transmission Date: 20061208
  Serious: Yes (Hospitalization)
  Sender: FDA-Public Use
  Company Number: None

PATIENT
  Age: 83 Year
  Sex: Male
  Weight: 64 kg

DRUGS (17)
  1. OMEPRAZOLE [Suspect]
     Indication: GASTROOESOPHAGEAL REFLUX DISEASE
     Dosage: 20MG DAILY PO  2 1/2  YEARS
     Route: 048
     Dates: start: 20040910, end: 20060610
  2. CHLOROTHIAZIDE [Concomitant]
  3. CYCLOBENZAPRINE HCL [Concomitant]
  4. DARBEPOETIN ALFA [Concomitant]
  5. DILTIAZEM HCL [Concomitant]
  6. FINASTERIDE [Concomitant]
  7. FUROSEMIDE [Concomitant]
  8. GABAPENTIN [Concomitant]
  9. GUAIFENESIN [Concomitant]
  10. HYDRALAZINE HCL [Concomitant]
  11. ISOSORBIDE DINITRATE [Concomitant]
  12. LORAZEPAM [Concomitant]
  13. NEPHROVITE [Concomitant]
  14. PREDNISONE [Concomitant]
  15. TERAZOSIN HCL [Concomitant]
  16. TRAZODONE HCL [Concomitant]
  17. ZAFIRLUKAST [Concomitant]

REACTIONS (2)
  - DIALYSIS [None]
  - NEPHRITIS INTERSTITIAL [None]
